FAERS Safety Report 9503348 (Version 1)
Quarter: 2013Q1

REPORT INFORMATION
  Report Type: Spontaneous
  Country: US (occurrence: None)
  Receive Date: 20130107
  Receipt Date: 20130107
  Transmission Date: 20140127
  Serious: No
  Sender: FDA-Public Use
  Company Number: PHEH2012US017576

PATIENT
  Age: 49 Year
  Sex: Female

DRUGS (2)
  1. GILENYA (FTY) CAPSULE, 0.5MG [Suspect]
     Indication: MULTIPLE SCLEROSIS
     Route: 048
     Dates: start: 20110214
  2. TRILEPTAL (OXCARBAZEPINE) UNKNOWN [Suspect]
     Indication: TRIGEMINAL NEURALGIA

REACTIONS (3)
  - Malaise [None]
  - Blood sodium decreased [None]
  - Fatigue [None]
